FAERS Safety Report 7837703 (Version 2)
Quarter: 2013Q1

REPORT INFORMATION
  Report Type: Spontaneous
  Country: US (occurrence: US)
  Receive Date: 20110302
  Receipt Date: 20130103
  Transmission Date: 20140127
  Serious: Yes (Hospitalization, Other)
  Sender: FDA-Public Use
  Company Number: US-PFIZER INC-2009305736

PATIENT
  Age: 87 Year
  Sex: Male

DRUGS (14)
  1. DILANTIN [Suspect]
     Indication: CONVULSION
     Dosage: 100 MG, 2X/DAY
     Route: 042
     Dates: start: 20080324
  2. DILANTIN [Suspect]
     Dosage: 200 MG, UNK
     Route: 042
     Dates: start: 20080326
  3. DILANTIN [Suspect]
     Dosage: 300 MG, AT BED TIME
     Route: 042
     Dates: start: 20080327
  4. DILANTIN [Suspect]
     Dosage: 500 MG, UNK
     Route: 042
     Dates: start: 20080330
  5. DILANTIN [Suspect]
     Dosage: 400 MG, UNK
     Route: 042
     Dates: start: 20080401
  6. KEPPRA [Concomitant]
     Indication: CONVULSION
     Dosage: UNK
     Dates: start: 20080324
  7. INSULIN [Concomitant]
     Dosage: UNK
  8. MORPHINE SULFATE [Concomitant]
     Dosage: UNK
  9. AVANDIA [Concomitant]
     Dosage: UNK
  10. SERTRALINE [Concomitant]
     Dosage: UNK
  11. HYDROCHLOROTHIAZIDE [Concomitant]
     Dosage: UNK
  12. LORAZEPAM [Concomitant]
     Dosage: UNK
  13. SENNA [Concomitant]
     Dosage: UNK
  14. DOCUSATE SODIUM [Concomitant]
     Dosage: UNK

REACTIONS (1)
  - Stevens-Johnson syndrome [Unknown]
